FAERS Safety Report 11054460 (Version 1)
Quarter: 2015Q2

REPORT INFORMATION
  Report Type: Spontaneous
  Country: US (occurrence: US)
  Receive Date: 20150422
  Receipt Date: 20150422
  Transmission Date: 20150821
  Serious: No
  Sender: FDA-Public Use
  Company Number: US-BIOGENIDEC-2015BI050652

PATIENT
  Sex: Male

DRUGS (3)
  1. TECFIDERA [Suspect]
     Active Substance: DIMETHYL FUMARATE
     Indication: MULTIPLE SCLEROSIS
     Route: 048
     Dates: start: 20140515
  2. AVONEX [Concomitant]
     Active Substance: INTERFERON BETA-1A
     Indication: MULTIPLE SCLEROSIS
     Route: 030
     Dates: start: 20120915
  3. AVONEX [Concomitant]
     Active Substance: INTERFERON BETA-1A
     Indication: MULTIPLE SCLEROSIS
     Route: 030
     Dates: start: 2012

REACTIONS (11)
  - Vomiting [Unknown]
  - Mobility decreased [Unknown]
  - General symptom [Unknown]
  - Pain [Unknown]
  - Adjustment disorder [Unknown]
  - Malaise [Unknown]
  - Headache [Unknown]
  - Visual acuity reduced [Unknown]
  - Confusional state [Unknown]
  - Anxiety [Unknown]
  - Multiple allergies [Unknown]
